FAERS Safety Report 4733584-4 (Version None)
Quarter: 2005Q3

REPORT INFORMATION
  Report Type: 
  Country: None (occurrence: None)
  Receive Date: 20050729
  Receipt Date: 20050718
  Transmission Date: 20060218
  Serious: Yes (Other)
  Sender: FDA-Public Use
  Company Number: 2005103277

PATIENT
  Age: 48 Year
  Sex: Female

DRUGS (1)
  1. ZOLTEC (FLUCONAZOLE) [Suspect]
     Indication: ONYCHOMYCOSIS
     Dosage: (150 MG, 1 DF WEEKLY), ORAL
     Route: 048
     Dates: start: 19971101

REACTIONS (3)
  - BLOOD PRESSURE INCREASED [None]
  - EMOTIONAL DISORDER [None]
  - URINARY TRACT INFECTION [None]
